FAERS Safety Report 5974265-9 (Version None)
Quarter: 2008Q4

REPORT INFORMATION
  Report Type: 
  Country: None (occurrence: None)
  Receive Date: 20081201
  Receipt Date: 20081127
  Transmission Date: 20090506
  Serious: Yes (Other)
  Sender: FDA-Public Use
  Company Number: BR-PFIZER INC-2008101104

PATIENT
  Sex: Male
  Weight: 65 kg

DRUGS (1)
  1. FRONTAL [Suspect]
     Indication: ANXIETY
     Route: 048

REACTIONS (3)
  - ABASIA [None]
  - DEPENDENCE [None]
  - FEMUR FRACTURE [None]
